FAERS Safety Report 4634107-0 (Version None)
Quarter: 2005Q2

REPORT INFORMATION
  Report Type: 
  Country: None (occurrence: None)
  Receive Date: 20050413
  Receipt Date: 20050210
  Transmission Date: 20051028
  Serious: Yes (Death)
  Sender: FDA-Public Use
  Company Number: IE-GLAXOSMITHKLINE-B0372051A

PATIENT
  Age: 50 Year
  Sex: Female

DRUGS (7)
  1. AUGMENTIN [Suspect]
     Indication: LOWER RESPIRATORY TRACT INFECTION
     Route: 042
     Dates: start: 20040929
  2. KLACID [Concomitant]
  3. DELTACORTRIL [Concomitant]
  4. COMBIVENT [Concomitant]
  5. SPIRIVA [Concomitant]
  6. SERETIDE [Concomitant]
  7. VENTOLIN HFA [Concomitant]

REACTIONS (1)
  - ANAPHYLACTOID REACTION [None]
